FAERS Safety Report 4449100-0 (Version None)
Quarter: 2004Q3

REPORT INFORMATION
  Report Type: 
  Country: None (occurrence: None)
  Receive Date: 20040910
  Receipt Date: 20040824
  Transmission Date: 20050211
  Serious: No
  Sender: FDA-Public Use
  Company Number: 2004230595PL

PATIENT
  Age: 22 Year
  Sex: Female

DRUGS (3)
  1. CYTARABINE [Suspect]
     Indication: ACUTE MYELOID LEUKAEMIA
  2. ETOPOSIDE [Suspect]
     Indication: ACUTE MYELOID LEUKAEMIA
  3. FARMORUBICIN PFS (EPIRUBICIN HYDROCHLORIDE) SOLUTION, STERILE [Suspect]
     Indication: ACUTE MYELOID LEUKAEMIA

REACTIONS (16)
  - BILE CULTURE POSITIVE [None]
  - BLOOD CULTURE POSITIVE [None]
  - GASTROINTESTINAL HAEMORRHAGE [None]
  - GENERAL PHYSICAL HEALTH DETERIORATION [None]
  - GRANULOMA [None]
  - HAEMOGLOBIN DECREASED [None]
  - HEPATIC NECROSIS [None]
  - HEPATOMEGALY [None]
  - JAUNDICE [None]
  - LIVER ABSCESS [None]
  - NEUTROPENIC COLITIS [None]
  - PLATELET COUNT DECREASED [None]
  - SEPTIC SHOCK [None]
  - SPLENIC ABSCESS [None]
  - SPLENIC NECROSIS [None]
  - SPLENOMEGALY [None]
